FAERS Safety Report 8883963 (Version 1)
Quarter: 2012Q4

REPORT INFORMATION
  Report Type: 
  Country: US (occurrence: US)
  Receive Date: 20121102
  Receipt Date: 20121102
  Transmission Date: 20130627
  Serious: No
  Sender: FDA-Public Use
  Company Number: US-ASTRAZENECA-2012SE25333

PATIENT
  Age: 54 Year
  Sex: Female
  Weight: 87.1 kg

DRUGS (3)
  1. CRESTOR [Suspect]
     Indication: CEREBROVASCULAR ACCIDENT PROPHYLAXIS
     Route: 048
  2. CRESTOR [Suspect]
     Indication: ISCHAEMIC HEART DISEASE PROPHYLAXIS
     Route: 048
  3. METFORMIN [Concomitant]
     Indication: GLUCOSE TOLERANCE IMPAIRED

REACTIONS (5)
  - Fall [Unknown]
  - Gait disturbance [Unknown]
  - Pain in extremity [Unknown]
  - Pain in extremity [Unknown]
  - Muscular weakness [Unknown]
